FAERS Safety Report 7493607-9 (Version None)
Quarter: 2011Q2

REPORT INFORMATION
  Report Type: 
  Country: None (occurrence: None)
  Receive Date: 20110520
  Receipt Date: 20110517
  Transmission Date: 20111010
  Serious: Yes (Death, Hospitalization)
  Sender: FDA-Public Use
  Company Number: PHHY2011AU35911

PATIENT
  Sex: Male

DRUGS (14)
  1. CALMOSEPTINE [Concomitant]
  2. PRAVASTATIN [Concomitant]
     Dosage: 10 MG, UNK
     Route: 048
  3. SENNA-MINT WAF [Concomitant]
  4. CLOTRIMAZOLE [Concomitant]
  5. RAMIPRIL [Concomitant]
  6. METOPROLOL TARTRATE [Concomitant]
  7. COLOXYL [Concomitant]
  8. MOVIPREP [Concomitant]
  9. MULTIVITAMIN ^LAPPE^ [Concomitant]
     Dosage: UNK
  10. SERTRALINE HYDROCHLORIDE [Concomitant]
     Dosage: 100 MG, UNK
  11. AMITRIPTYLINE HCL [Concomitant]
     Indication: NEURALGIA
     Dosage: 10 MG, UNK
  12. CLOZARIL [Suspect]
     Dosage: 600 MG, UNK
     Dates: start: 20070507
  13. PANADOL [Concomitant]
     Dosage: 665 MG, UNK
  14. ASPIRIN [Concomitant]

REACTIONS (12)
  - BRACHIAL PLEXUS INJURY [None]
  - LOWER RESPIRATORY TRACT INFECTION [None]
  - BLOOD IRON DECREASED [None]
  - TOTAL CHOLESTEROL/HDL RATIO INCREASED [None]
  - RED BLOOD CELL COUNT DECREASED [None]
  - DEATH [None]
  - HAEMOGLOBIN DECREASED [None]
  - BLOOD TRIGLYCERIDES INCREASED [None]
  - BLOOD CREATININE DECREASED [None]
  - RHABDOMYOLYSIS [None]
  - TRANSFERRIN SATURATION DECREASED [None]
  - SYNCOPE [None]
